FAERS Safety Report 5702031-8 (Version None)
Quarter: 2008Q2

REPORT INFORMATION
  Report Type: 
  Country: None (occurrence: None)
  Receive Date: 20080411
  Receipt Date: 20070521
  Transmission Date: 20081010
  Serious: No
  Sender: FDA-Public Use
  Company Number: US-ABBOTT-07P-163-0369123-00

PATIENT
  Sex: Female

DRUGS (2)
  1. DEPAKOTE [Suspect]
     Indication: POST-TRAUMATIC STRESS DISORDER
     Route: 048
  2. HALDOL [Concomitant]
     Indication: POST-TRAUMATIC STRESS DISORDER

REACTIONS (3)
  - ALOPECIA [None]
  - SUICIDAL IDEATION [None]
  - TONGUE DISORDER [None]
